FAERS Safety Report 8786315 (Version 1)
Quarter: 2012Q4

REPORT INFORMATION
  Report Type: 
  Country: CN (occurrence: CN)
  Receive Date: 20120914
  Receipt Date: 20120914
  Transmission Date: 20130627
  Serious: Yes (Other)
  Sender: FDA-Public Use
  Company Number: CN-PFIZER INC-2012224553

PATIENT
  Age: 59 Year
  Sex: Male
  Weight: 50 kg

DRUGS (2)
  1. TAZOCIN [Suspect]
     Indication: LUNG INFECTION
     Dosage: 4.5 g, 1x/day
     Route: 041
     Dates: start: 20110527, end: 20110527
  2. TAZOCIN [Suspect]
     Dosage: 4.5 g, 3x/day
     Route: 041
     Dates: start: 20110528, end: 20110529

REACTIONS (4)
  - Chills [Recovered/Resolved]
  - Pyrexia [Recovered/Resolved]
  - Tachypnoea [Recovered/Resolved]
  - Tachycardia [Recovered/Resolved]
